FAERS Safety Report 10721269 (Version 22)
Quarter: 2015Q4

REPORT INFORMATION
  Report Type: Report from Study
  Country: US (occurrence: US)
  Receive Date: 20150119
  Receipt Date: 20151123
  Transmission Date: 20160304
  Serious: Yes (Hospitalization, Other)
  Sender: FDA-Public Use
  Company Number: US-ALEXION PHARMACEUTICALS INC-A201500107

PATIENT
  Sex: Female
  Weight: 188.66 kg

DRUGS (6)
  1. SOLIRIS [Suspect]
     Active Substance: ECULIZUMAB
     Dosage: 900 MG, Q2W
     Route: 042
  2. SOLIRIS [Suspect]
     Active Substance: ECULIZUMAB
     Indication: PAROXYSMAL NOCTURNAL HAEMOGLOBINURIA
     Dosage: UNK
     Route: 042
  3. SOLIRIS [Suspect]
     Active Substance: ECULIZUMAB
     Dosage: UNK
     Route: 042
  4. LOVENOX [Suspect]
     Active Substance: ENOXAPARIN SODIUM
     Indication: PULMONARY EMBOLISM
     Dosage: UNK
     Route: 065
  5. MEGASEF [Concomitant]
     Indication: PRODUCT USED FOR UNKNOWN INDICATION
     Dosage: UNK
     Route: 065
  6. HEPARIN [Concomitant]
     Active Substance: HEPARIN SODIUM
     Indication: PRODUCT USED FOR UNKNOWN INDICATION
     Dosage: UNK
     Route: 065

REACTIONS (34)
  - Pulmonary embolism [Unknown]
  - Peripheral swelling [Unknown]
  - Nasopharyngitis [Unknown]
  - Platelet count abnormal [Not Recovered/Not Resolved]
  - Device related infection [Unknown]
  - Cough [Unknown]
  - Dyspnoea [Unknown]
  - Platelet count abnormal [Unknown]
  - Unevaluable event [Unknown]
  - Fatigue [Unknown]
  - Blood lactate dehydrogenase abnormal [Not Recovered/Not Resolved]
  - Pain [Unknown]
  - Pyrexia [Unknown]
  - Splenomegaly [Unknown]
  - Haematoma [Unknown]
  - Social stay hospitalisation [Unknown]
  - Vaginal haemorrhage [Unknown]
  - Loss of consciousness [Unknown]
  - Skin warm [Not Recovered/Not Resolved]
  - Abdominal pain [Unknown]
  - Abdominal pain [Unknown]
  - Pain in extremity [Unknown]
  - Abdominal pain [Unknown]
  - Oropharyngeal pain [Unknown]
  - Unevaluable event [Unknown]
  - Dyspnoea [Unknown]
  - Haemoglobin abnormal [Unknown]
  - Platelet count decreased [Unknown]
  - Oedema peripheral [Unknown]
  - Abdominal pain [Unknown]
  - Nausea [Unknown]
  - Dyspnoea [Unknown]
  - Head injury [Unknown]
  - Urinary tract infection [Unknown]

NARRATIVE: CASE EVENT DATE: 2015
